FAERS Safety Report 14815078 (Version 3)
Quarter: 2018Q2

REPORT INFORMATION
  Report Type: Spontaneous
  Country: GR (occurrence: GR)
  Receive Date: 20180426
  Receipt Date: 20180509
  Transmission Date: 20180711
  Serious: Yes (Other)
  Sender: FDA-Public Use
  Company Number: GR-PFIZER INC-2018162712

PATIENT
  Age: 80 Year
  Sex: Female

DRUGS (1)
  1. METHYLPREDNISOLONE. [Suspect]
     Active Substance: METHYLPREDNISOLONE
     Indication: TEMPORAL ARTERITIS
     Dosage: 20 MG, UNK
     Route: 048

REACTIONS (5)
  - Macular degeneration [Unknown]
  - Bronchitis [Unknown]
  - Temporal arteritis [Unknown]
  - Gastrointestinal tract irritation [Unknown]
  - Vomiting [Unknown]
